FAERS Safety Report 5238267-2 (Version None)
Quarter: 2007Q1

REPORT INFORMATION
  Report Type: 
  Country: None (occurrence: None)
  Receive Date: 20070215
  Receipt Date: 20070209
  Transmission Date: 20070707
  Serious: Yes (Hospitalization)
  Sender: FDA-Public Use
  Company Number: GB-BAXTER-2007BH000467

PATIENT
  Age: 37 Year
  Sex: Male
  Weight: 92 kg

DRUGS (7)
  1. EXTRANEAL [Suspect]
     Indication: PERITONEAL DIALYSIS
     Route: 033
     Dates: start: 20060221
  2. DIANEAL [Suspect]
     Indication: PERITONEAL DIALYSIS
     Route: 033
     Dates: start: 20060221
  3. ARANESP [Concomitant]
  4. CALCIUM ACETATE [Concomitant]
  5. FRUSEMIDE [Concomitant]
  6. AMLODIPINE [Concomitant]
  7. MOVICOL [Concomitant]
     Dates: start: 20060101

REACTIONS (2)
  - CATHETER RELATED COMPLICATION [None]
  - PERITONITIS [None]
